FAERS Safety Report 10195249 (Version 1)
Quarter: 2014Q2

REPORT INFORMATION
  Report Type: Spontaneous
  Country: US (occurrence: US)
  Receive Date: 20140526
  Receipt Date: 20140526
  Transmission Date: 20141212
  Serious: No
  Sender: FDA-Public Use
  Company Number: US-JNJFOC-20140511198

PATIENT
  Sex: Male
  Weight: 77.57 kg

DRUGS (10)
  1. INVEGA [Suspect]
     Indication: SCHIZOAFFECTIVE DISORDER
     Route: 048
     Dates: start: 200901
  2. INVEGA [Suspect]
     Indication: SCHIZOAFFECTIVE DISORDER
     Route: 048
     Dates: start: 200805, end: 2008
  3. INVEGA [Suspect]
     Indication: SCHIZOAFFECTIVE DISORDER
     Route: 048
     Dates: start: 2011
  4. INVEGA [Suspect]
     Indication: SCHIZOAFFECTIVE DISORDER
     Route: 048
     Dates: start: 2008
  5. INVEGA [Suspect]
     Indication: SCHIZOAFFECTIVE DISORDER
     Route: 048
     Dates: start: 2008
  6. WELLBUTRIN [Concomitant]
     Route: 048
  7. CLARITIN [Concomitant]
     Route: 065
  8. GINKO BILOBA [Concomitant]
     Route: 065
  9. GINSENG [Concomitant]
     Route: 065
  10. GARLIC [Concomitant]
     Route: 065

REACTIONS (4)
  - Feeling abnormal [Recovered/Resolved]
  - Drug ineffective [Recovered/Resolved]
  - Paranoia [Recovered/Resolved]
  - Incorrect dose administered [Recovered/Resolved]
